FAERS Safety Report 5168192-7 (Version None)
Quarter: 2006Q4

REPORT INFORMATION
  Report Type: 
  Country: None (occurrence: None)
  Receive Date: 20061130
  Receipt Date: 20061128
  Transmission Date: 20070319
  Serious: Yes (Death, Hospitalization)
  Sender: FDA-Public Use
  Company Number: 163-21880-06110130

PATIENT
  Age: 75 Year
  Sex: Male

DRUGS (8)
  1. REVLIMID [Suspect]
     Indication: MULTIPLE MYELOMA
     Dosage: 25 MG, 1 IN 1 D, ORAL
     Route: 048
     Dates: start: 20061016, end: 20061030
  2. MULTIVITAMIN [Concomitant]
  3. THYROID TAB [Concomitant]
  4. LASIX [Concomitant]
  5. ASPIRIN [Concomitant]
  6. DECADRON [Concomitant]
  7. LORAZEPAM [Concomitant]
  8. SILVASTATIN [Concomitant]

REACTIONS (2)
  - DISEASE PROGRESSION [None]
  - HYPONATRAEMIA [None]
